FAERS Safety Report 10727221 (Version 1)
Quarter: 2015Q1

REPORT INFORMATION
  Report Type: Spontaneous
  Country: PE (occurrence: PE)
  Receive Date: 20150121
  Receipt Date: 20150121
  Transmission Date: 20150721
  Serious: Yes (Death)
  Sender: FDA-Public Use
  Company Number: PE-009507513-1501PER007031

PATIENT
  Age: 73 Year
  Sex: Female

DRUGS (1)
  1. NASONEX [Suspect]
     Active Substance: MOMETASONE FUROATE
     Dosage: BID (2 APPLICATIONS PER DAY)
     Dates: start: 20140903

REACTIONS (1)
  - Death [Fatal]
